FAERS Safety Report 8203022-8 (Version None)
Quarter: 2012Q1

REPORT INFORMATION
  Report Type: 
  Country: None (occurrence: None)
  Receive Date: 20120312
  Receipt Date: 20110314
  Transmission Date: 20120608
  Serious: Yes (Other)
  Sender: FDA-Public Use
  Company Number: US-JNJCP-30000046872

PATIENT
  Age: 62 Year
  Sex: Female

DRUGS (2)
  1. NONE [Concomitant]
  2. AVEENO DAILY MOISTURIZING LTN 2.5 OZ TUBE USA 8137003602 8137003602USA [Suspect]
     Indication: DRY SKIN
     Dosage: ABOUT A QUARTER SIZE AMOUNT, TWICE A WEEK
     Route: 061
     Dates: start: 20110222, end: 20110222

REACTIONS (3)
  - PHARYNGEAL OEDEMA [None]
  - APPLICATION SITE SWELLING [None]
  - DYSPNOEA [None]
